FAERS Safety Report 8897093 (Version 1)
Quarter: 2012Q4

REPORT INFORMATION
  Report Type: 
  Country: US (occurrence: US)
  Receive Date: 20121108
  Receipt Date: 20121108
  Transmission Date: 20130627
  Serious: No
  Sender: FDA-Public Use
  Company Number: US-AMGEN-USASP2012030001

PATIENT
  Sex: Male

DRUGS (9)
  1. ENBREL [Suspect]
     Indication: SYSTEMIC LUPUS ERYTHEMATOSUS
     Dosage: 50 mg, qwk
     Route: 058
     Dates: start: 20110711
  2. ENBREL [Suspect]
     Indication: RHEUMATOID ARTHRITIS
  3. BENADRYL                           /00000402/ [Concomitant]
  4. INDOMETHACIN                       /00003801/ [Concomitant]
  5. LEXAPRO [Concomitant]
  6. LISINOPRIL [Concomitant]
  7. METHOTREXATE [Concomitant]
  8. TEMAZEPAM [Concomitant]
  9. WELLBUTRIN [Concomitant]

REACTIONS (3)
  - Neck mass [Not Recovered/Not Resolved]
  - Systemic lupus erythematosus [Not Recovered/Not Resolved]
  - Rheumatoid arthritis [Not Recovered/Not Resolved]
